FAERS Safety Report 7726543-0 (Version None)
Quarter: 2011Q3

REPORT INFORMATION
  Report Type: 
  Country: None (occurrence: None)
  Receive Date: 20110902
  Receipt Date: 20110824
  Transmission Date: 20111222
  Serious: Yes (Other)
  Sender: FDA-Public Use
  Company Number: PHFR2011GB01277

PATIENT
  Sex: Female

DRUGS (2)
  1. CLOZAPINE [Suspect]
     Dosage: 400 MG MORNING + 350 MG EVENING
     Route: 048
     Dates: start: 20060421
  2. CLOZAPINE [Suspect]
     Dosage: 400 MG MORNING + 400 MG EVENING
     Route: 048

REACTIONS (1)
  - INCORRECT DOSE ADMINISTERED [None]
